FAERS Safety Report 17675401 (Version 1)
Quarter: 2020Q2

REPORT INFORMATION
  Report Type: Spontaneous
  Country: RU (occurrence: RU)
  Receive Date: 20200416
  Receipt Date: 20200416
  Transmission Date: 20200714
  Serious: Yes (Hospitalization, Other)
  Sender: FDA-Public Use
  Company Number: RU-GLAXOSMITHKLINE-RU2020EME060795

PATIENT
  Age: 13 Year
  Sex: Female

DRUGS (1)
  1. LAMOTRIGINE. [Suspect]
     Active Substance: LAMOTRIGINE
     Indication: ANOREXIA NERVOSA
     Dosage: UNK

REACTIONS (9)
  - Skin disorder [Unknown]
  - Anuria [Unknown]
  - Hyperosmolar state [Unknown]
  - Disseminated intravascular coagulation [Recovering/Resolving]
  - Toxic epidermal necrolysis [Unknown]
  - Multiple organ dysfunction syndrome [Unknown]
  - Sepsis [Unknown]
  - Rash papular [Unknown]
  - Hypothermia [Unknown]
